FAERS Safety Report 24799056 (Version 3)
Quarter: 2025Q2

REPORT INFORMATION
  Report Type: Spontaneous
  Country: US (occurrence: US)
  Receive Date: 20250102
  Receipt Date: 20250407
  Transmission Date: 20250717
  Serious: No
  Sender: INTRA-CELLULAR THERAPIES
  Company Number: US-INTRA-CELLULAR THERAPIES, INC.-2024ICT02054

PATIENT
  Age: 42 Year
  Sex: Female
  Weight: 91.61 kg

DRUGS (9)
  1. CAPLYTA [Suspect]
     Active Substance: LUMATEPERONE
     Indication: Generalised anxiety disorder
     Dosage: 21 MG, 1X/DAY
     Route: 048
     Dates: start: 20241108, end: 20241203
  2. CAPLYTA [Suspect]
     Active Substance: LUMATEPERONE
     Indication: Generalised anxiety disorder
     Route: 048
     Dates: start: 20241204, end: 202412
  3. LORAZEPAM [Concomitant]
     Active Substance: LORAZEPAM
     Dosage: 2 MG, 1X/DAY IN THE MORNING
  4. LORAZEPAM [Concomitant]
     Active Substance: LORAZEPAM
     Dosage: 1 MG, 1X/DAY IN THE EVENING AND AS NEEDED
  5. LORAZEPAM [Concomitant]
     Active Substance: LORAZEPAM
  6. GABAPENTIN [Concomitant]
     Active Substance: GABAPENTIN
  7. LEXAPRO [Concomitant]
     Active Substance: ESCITALOPRAM OXALATE
  8. LEVOTHYROXINE [Concomitant]
     Active Substance: LEVOTHYROXINE
  9. METOPROLOL [Concomitant]
     Active Substance: METOPROLOL
     Dosage: 25 MG, 1X/DAY
     Route: 048

REACTIONS (10)
  - Anal incontinence [Recovering/Resolving]
  - Dysarthria [Recovering/Resolving]
  - Presyncope [Recovering/Resolving]
  - Slow speech [Recovering/Resolving]
  - Asthenia [Recovering/Resolving]
  - Heart rate decreased [Recovering/Resolving]
  - Defect conduction intraventricular [Unknown]
  - Diarrhoea [Recovering/Resolving]
  - Gait disturbance [Recovering/Resolving]
  - Off label use [Recovered/Resolved]

NARRATIVE: CASE EVENT DATE: 20241216
